FAERS Safety Report 4518318-0 (Version None)
Quarter: 2004Q4

REPORT INFORMATION
  Report Type: 
  Country: None (occurrence: None)
  Receive Date: 20041202
  Receipt Date: 20041129
  Transmission Date: 20050328
  Serious: Yes (Other)
  Sender: FDA-Public Use
  Company Number: 200415324BCC

PATIENT
  Age: 43 Year
  Sex: Female
  Weight: 77.1115 kg

DRUGS (1)
  1. ASPIRIN [Suspect]
     Dosage: ORAL
     Route: 048
     Dates: start: 20041102

REACTIONS (2)
  - DEAFNESS [None]
  - TINNITUS [None]
